FAERS Safety Report 5031948-5 (Version None)
Quarter: 2006Q2

REPORT INFORMATION
  Report Type: 
  Country: None (occurrence: None)
  Receive Date: 20060621
  Receipt Date: 20051115
  Transmission Date: 20061013
  Serious: No
  Sender: FDA-Public Use
  Company Number: US-AMGEN-US158142

PATIENT
  Sex: Female

DRUGS (3)
  1. ARANESP [Suspect]
     Indication: HEPATITIS C
     Route: 058
  2. RIBAVIRIN [Suspect]
  3. PEGINTERFERON ALPHA 2A [Suspect]

REACTIONS (1)
  - CHEST DISCOMFORT [None]
